FAERS Safety Report 11082002 (Version 2)
Quarter: 2015Q2

REPORT INFORMATION
  Report Type: Spontaneous
  Country: US (occurrence: US)
  Receive Date: 20150501
  Receipt Date: 20150529
  Transmission Date: 20150821
  Serious: No
  Sender: FDA-Public Use
  Company Number: US-PFIZER INC-2015144319

PATIENT
  Age: 70 Year
  Sex: Female
  Weight: 83 kg

DRUGS (3)
  1. NICOTROL [Suspect]
     Active Substance: NICOTINE
     Dosage: 2 SPRAYS IN EACH NOSTRIL, 2X/DAY
     Route: 045
     Dates: start: 20150424, end: 20150424
  2. XOPENEX [Concomitant]
     Active Substance: LEVALBUTEROL HYDROCHLORIDE
     Dosage: UNK
  3. NICOTROL [Suspect]
     Active Substance: NICOTINE
     Dosage: ONE SPRAY IN EACH NOSE
     Route: 045
     Dates: start: 20150423, end: 20150423

REACTIONS (3)
  - Nasal discomfort [Unknown]
  - Pharyngeal oedema [Unknown]
  - Lacrimation increased [Unknown]

NARRATIVE: CASE EVENT DATE: 20150424
